FAERS Safety Report 6603231-5 (Version None)
Quarter: 2010Q1

REPORT INFORMATION
  Report Type: 
  Country: None (occurrence: None)
  Receive Date: 20100226
  Receipt Date: 20100224
  Transmission Date: 20100710
  Serious: Yes (Other)
  Sender: FDA-Public Use
  Company Number: GB-ROXANE LABORATORIES, INC.-2010-RO-00197RO

PATIENT
  Age: 74 Year
  Sex: Male

DRUGS (13)
  1. METHOTREXATE [Suspect]
     Indication: LARGE GRANULAR LYMPHOCYTOSIS
     Route: 048
  2. METHOTREXATE [Suspect]
     Route: 048
  3. METHOTREXATE [Suspect]
     Route: 037
  4. CYCLOPHOSPHAMIDE [Suspect]
     Indication: DIFFUSE LARGE B-CELL LYMPHOMA
  5. CYCLOPHOSPHAMIDE [Suspect]
     Indication: CHEMOTHERAPY
  6. RITUXIMAB [Suspect]
     Indication: DIFFUSE LARGE B-CELL LYMPHOMA
  7. RITUXIMAB [Suspect]
     Indication: CHEMOTHERAPY
  8. DOXORUBICIN HCL [Suspect]
     Indication: DIFFUSE LARGE B-CELL LYMPHOMA
  9. DOXORUBICIN HCL [Suspect]
     Indication: CHEMOTHERAPY
  10. VINCRISTINE [Suspect]
     Indication: DIFFUSE LARGE B-CELL LYMPHOMA
  11. VINCRISTINE [Suspect]
     Indication: CHEMOTHERAPY
  12. PREDNISOLONE [Suspect]
     Indication: DIFFUSE LARGE B-CELL LYMPHOMA
  13. PREDNISOLONE [Suspect]
     Indication: CHEMOTHERAPY

REACTIONS (2)
  - DIFFUSE LARGE B-CELL LYMPHOMA [None]
  - DRUG INEFFECTIVE [None]
